FAERS Safety Report 5320689-2 (Version None)
Quarter: 2007Q1

REPORT INFORMATION
  Report Type: 
  Country: None (occurrence: None)
  Receive Date: 20070220
  Receipt Date: 20061212
  Transmission Date: 20070707
  Serious: No
  Sender: FDA-Public Use
  Company Number: WAES 0612USA02411

PATIENT
  Sex: Male

DRUGS (1)
  1. JANUVIA [Suspect]
     Dates: start: 20061128

REACTIONS (1)
  - THERAPEUTIC RESPONSE DECREASED [None]
